FAERS Safety Report 7395278 (Version 4)
Quarter: 2013Q1

REPORT INFORMATION
  Report Type: Spontaneous
  Country: FR (occurrence: FR)
  Receive Date: 20100521
  Receipt Date: 20130125
  Transmission Date: 20140127
  Serious: Yes (Hospitalization, Disabling, Other)
  Sender: FDA-Public Use
  Company Number: FR-PFIZER INC-2010060973

PATIENT
  Age: 43 Year
  Sex: Female

DRUGS (2)
  1. VIRACEPT [Suspect]
     Indication: PROPHYLAXIS
     Dosage: 750 MG, 3X/DAY
     Route: 048
     Dates: start: 200005, end: 20000630
  2. COMBIVIR [Suspect]
     Dosage: 150 MG/300MG (1 DF,2 IN 1 D)
     Route: 048
     Dates: start: 20000530, end: 20000630

REACTIONS (6)
  - Autoimmune thyroiditis [Unknown]
  - Sjogren^s syndrome [Unknown]
  - Nervous system disorder [Unknown]
  - Asthenia [Not Recovered/Not Resolved]
  - Arthralgia [Not Recovered/Not Resolved]
  - Neuropathy peripheral [Not Recovered/Not Resolved]
